FAERS Safety Report 13656776 (Version 1)
Quarter: 2017Q2

REPORT INFORMATION
  Report Type: Spontaneous
  Country: ES (occurrence: ES)
  Receive Date: 20170615
  Receipt Date: 20170615
  Transmission Date: 20170830
  Serious: No
  Sender: FDA-Public Use
  Company Number: ES-ALLERGAN-1702455US

PATIENT
  Age: 51 Year
  Sex: Female

DRUGS (1)
  1. OXYBUTYNIN UNK [Suspect]
     Active Substance: OXYBUTYNIN
     Indication: HYPERTONIC BLADDER
     Dosage: 3.9 MG/24 HOURS
     Route: 062

REACTIONS (1)
  - Skin reaction [Unknown]
